FAERS Safety Report 7725592-6 (Version None)
Quarter: 2011Q3

REPORT INFORMATION
  Report Type: 
  Country: None (occurrence: None)
  Receive Date: 20110830
  Receipt Date: 20110802
  Transmission Date: 20111222
  Serious: Yes (Other)
  Sender: FDA-Public Use
  Company Number: 2011AT000053

PATIENT
  Age: 81 Year
  Sex: Male

DRUGS (9)
  1. ALPROSTADIL [Suspect]
     Indication: PERIPHERAL ARTERIAL OCCLUSIVE DISEASE
     Dosage: 40 UG;BID;IV
     Route: 042
     Dates: end: 20110130
  2. SORTIS /01326101/ [Concomitant]
  3. HYDROCHLOROTHIAZIDE [Concomitant]
  4. ENALAPRIL MALEATE [Concomitant]
  5. ALLOPURINOL [Concomitant]
  6. TORSEMIDE [Concomitant]
  7. VALORON /00205402/ [Concomitant]
  8. ASPIRIN [Concomitant]
  9. MOLSIDOMIN [Concomitant]

REACTIONS (12)
  - URINARY TRACT INFECTION [None]
  - HAEMATURIA [None]
  - BLOOD THYROID STIMULATING HORMONE INCREASED [None]
  - TRICUSPID VALVE INCOMPETENCE [None]
  - PULMONARY CONGESTION [None]
  - URETHRAL STENOSIS [None]
  - SKIN ULCER [None]
  - VENOUS INSUFFICIENCY [None]
  - CARDIAC DISORDER [None]
  - DYSPNOEA [None]
  - URINARY RETENTION [None]
  - ANEURYSM [None]
